FAERS Safety Report 8885975 (Version 1)
Quarter: 2012Q4

REPORT INFORMATION
  Report Type: 
  Country: US (occurrence: US)
  Receive Date: 20121105
  Receipt Date: 20121105
  Transmission Date: 20130627
  Serious: Yes (Life-Threatening, Disabling)
  Sender: FDA-Public Use
  Company Number: US-BAYER-2012-113642

PATIENT
  Age: 43 Year
  Sex: Female

DRUGS (3)
  1. AVELOX [Suspect]
     Indication: INFECTION NOS
     Dosage: UNK
     Route: 048
     Dates: start: 20121018
  2. ACTOS [Concomitant]
  3. SYNCTOZA [Concomitant]

REACTIONS (1)
  - Anaphylactoid reaction [Recovered/Resolved]
